FAERS Safety Report 9022135 (Version 1)
Quarter: 2013Q1

REPORT INFORMATION
  Report Type: Spontaneous
  Country: BR (occurrence: BR)
  Receive Date: 20130118
  Receipt Date: 20130118
  Transmission Date: 20140127
  Serious: Yes (Other)
  Sender: FDA-Public Use
  Company Number: BR-PFIZER INC-2013015953

PATIENT
  Age: 44 Year
  Sex: Female

DRUGS (4)
  1. FRONTAL [Suspect]
     Indication: SCHIZOPHRENIA
     Dosage: 2 MG, 2 TABLETS PER DAY
     Dates: start: 2010
  2. DEPAKOTE [Concomitant]
     Indication: SCHIZOPHRENIA
     Dosage: UNK
     Dates: start: 2008
  3. NEULEPTIL [Concomitant]
     Indication: SCHIZOPHRENIA
     Dosage: UNK
     Dates: start: 2009
  4. RISPERIDONE [Concomitant]
     Indication: SCHIZOPHRENIA
     Dosage: UNK
     Dates: start: 2008

REACTIONS (2)
  - VIIth nerve paralysis [Unknown]
  - Off label use [Unknown]
